FAERS Safety Report 10673869 (Version 1)
Quarter: 2014Q4

REPORT INFORMATION
  Report Type: Spontaneous
  Country: US (occurrence: None)
  Receive Date: 20141222
  Receipt Date: 20141222
  Transmission Date: 20150529
  Serious: Yes (Other)
  Sender: FDA-Public Use
  Company Number: US-H14001-14-01822

PATIENT
  Age: 72 Year

DRUGS (2)
  1. RITUXIMAB [Suspect]
     Active Substance: RITUXIMAB
     Indication: CHRONIC LYMPHOCYTIC LEUKAEMIA
     Dosage: 375 MG/M2, EVERY 3 MONTHS, INTRAVENOUS (NOT OTHERWISE SPECIFIED)
     Route: 042
     Dates: start: 20120105, end: 20140108
  2. DEXAMETHASONE(DEXAMETHASONE SODIUM PHOSPHATE) (10 MILLIGRAM/MILLILITERS, UNKNOWN)(DEXAMETHASONE SODIUM PHOSPHATE) [Suspect]
     Active Substance: DEXAMETHASONE
     Indication: CHRONIC LYMPHOCYTIC LEUKAEMIA
     Dosage: 12 MG, EVERY 3 MONTHS, INTRAVENOUS (NOT OTHERWISE SPECIFIED)
     Route: 042
     Dates: start: 20120105, end: 20140108

REACTIONS (2)
  - Breast mass [None]
  - Benign breast neoplasm [None]

NARRATIVE: CASE EVENT DATE: 20130312
